FAERS Safety Report 26006592 (Version 1)
Quarter: 2025Q4

REPORT INFORMATION
  Report Type: Spontaneous
  Country: US (occurrence: None)
  Receive Date: 20251106
  Receipt Date: 20251106
  Transmission Date: 20260117
  Serious: No
  Sender: FDA-CTU
  Company Number: None

PATIENT
  Sex: Female

DRUGS (1)
  1. HYRIMOZ [Suspect]
     Active Substance: ADALIMUMAB-ADAZ
     Indication: Rheumatoid arthritis
     Dosage: 40 MG EVERY 14 DAYS SUBCUTANEOUS
     Route: 058
     Dates: start: 20251022

REACTIONS (3)
  - Wrong technique in device usage process [None]
  - Accidental exposure to product [None]
  - Limb injury [None]
